FAERS Safety Report 12828748 (Version 1)
Quarter: 2016Q4

REPORT INFORMATION
  Report Type: Spontaneous
  Country: US (occurrence: US)
  Receive Date: 20161007
  Receipt Date: 20161007
  Transmission Date: 20170207
  Serious: No
  Sender: FDA-Public Use
  Company Number: US-SA-2015SA182399

PATIENT
  Sex: Female

DRUGS (4)
  1. AVONEX [Concomitant]
     Active Substance: INTERFERON BETA-1A
  2. TECFIDERA [Concomitant]
     Active Substance: DIMETHYL FUMARATE
  3. COPAXONE [Concomitant]
     Active Substance: GLATIRAMER ACETATE
  4. AUBAGIO [Suspect]
     Active Substance: TERIFLUNOMIDE
     Indication: MULTIPLE SCLEROSIS
     Route: 065

REACTIONS (3)
  - Diarrhoea [Unknown]
  - Defaecation urgency [Unknown]
  - Abdominal pain upper [Unknown]
